FAERS Safety Report 10210124 (Version 1)
Quarter: 2014Q2

REPORT INFORMATION
  Report Type: Report from Study
  Country: JP (occurrence: JP)
  Receive Date: 20140602
  Receipt Date: 20140602
  Transmission Date: 20141212
  Serious: Yes (Death, Other)
  Sender: FDA-Public Use
  Company Number: PHHY2014JP066993

PATIENT
  Age: 35 Year
  Sex: Male
  Weight: 87 kg

DRUGS (7)
  1. AFINITOR [Suspect]
     Indication: PANCREATIC NEUROENDOCRINE TUMOUR
     Dosage: 10 MG, QD
     Route: 048
     Dates: start: 20131107, end: 20131205
  2. IRINOTECAN HYDROCHLORIDE TRIHYDRATE [Concomitant]
     Indication: PANCREATIC NEUROENDOCRINE TUMOUR
     Route: 065
     Dates: start: 20120515
  3. GEMZAR [Concomitant]
     Indication: PANCREATIC NEUROENDOCRINE TUMOUR
     Route: 065
     Dates: start: 20130122, end: 20130627
  4. TAS 114 [Concomitant]
     Indication: PANCREATIC NEUROENDOCRINE TUMOUR
     Route: 048
     Dates: start: 20130730, end: 20131031
  5. TS-1 [Concomitant]
     Indication: PANCREATIC NEUROENDOCRINE TUMOUR
     Route: 048
     Dates: start: 20130730, end: 20131031
  6. BASEN//VOGLIBOSE [Concomitant]
     Indication: DIABETES MELLITUS
     Dosage: 0.6 MG, UNK
     Route: 048
  7. PRAZAXA [Concomitant]
     Indication: THROMBOSIS PROPHYLAXIS
     Dosage: 300 MG
     Route: 048

REACTIONS (5)
  - Malignant neoplasm progression [Fatal]
  - Blood albumin decreased [Fatal]
  - Blood alkaline phosphatase increased [Fatal]
  - Blood creatinine increased [Fatal]
  - General physical health deterioration [Fatal]
